FAERS Safety Report 8695035 (Version 4)
Quarter: 2013Q1

REPORT INFORMATION
  Report Type: Report from Study
  Country: JP (occurrence: JP)
  Receive Date: 20120731
  Receipt Date: 20130103
  Transmission Date: 20140127
  Serious: Yes (Life-Threatening, Hospitalization, Other)
  Sender: FDA-Public Use
  Company Number: JP-ROCHE-1091649

PATIENT
  Age: 65 Year
  Sex: Male
  Weight: 50 kg

DRUGS (25)
  1. TOCILIZUMAB [Suspect]
     Indication: RHEUMATOID ARTHRITIS
     Route: 041
     Dates: start: 20080515, end: 20080515
  2. TOCILIZUMAB [Suspect]
     Route: 041
     Dates: start: 20080612, end: 20080612
  3. TOCILIZUMAB [Suspect]
     Route: 041
     Dates: start: 20080711, end: 20080711
  4. TOCILIZUMAB [Suspect]
     Route: 041
     Dates: start: 20080807, end: 20080807
  5. TOCILIZUMAB [Suspect]
     Route: 041
     Dates: start: 20080904, end: 20080904
  6. TOCILIZUMAB [Suspect]
     Route: 041
     Dates: start: 20081002, end: 20081002
  7. TOCILIZUMAB [Suspect]
     Route: 041
     Dates: start: 20081030, end: 20081030
  8. TOCILIZUMAB [Suspect]
     Route: 041
     Dates: start: 20081127, end: 20081127
  9. TOCILIZUMAB [Suspect]
     Route: 041
     Dates: start: 20081225, end: 20081225
  10. TOCILIZUMAB [Suspect]
     Route: 041
     Dates: start: 20090122, end: 20090122
  11. TOCILIZUMAB [Suspect]
     Route: 041
     Dates: start: 20090217, end: 20090217
  12. TOCILIZUMAB [Suspect]
     Route: 041
     Dates: start: 20090317, end: 20090317
  13. TOCILIZUMAB [Suspect]
     Route: 041
     Dates: start: 20090414, end: 20090414
  14. TOCILIZUMAB [Suspect]
     Route: 041
     Dates: start: 20090512, end: 20100121
  15. TOCILIZUMAB [Suspect]
     Route: 041
     Dates: start: 20100304, end: 20100402
  16. METHOTREXATE [Suspect]
     Indication: PRODUCT USED FOR UNKNOWN INDICATION
     Dosage: DOSAGE IS UNCERTAIN.
     Route: 048
  17. PROGRAF [Concomitant]
     Indication: RHEUMATOID ARTHRITIS
     Route: 048
     Dates: end: 20090608
  18. PROGRAF [Concomitant]
     Route: 048
     Dates: start: 20090609, end: 20090707
  19. PREDNISOLONE [Concomitant]
     Indication: RHEUMATOID ARTHRITIS
     Route: 048
     Dates: start: 20080415, end: 20080514
  20. PREDNISOLONE [Concomitant]
     Route: 048
     Dates: start: 20080515, end: 20080708
  21. PREDNISOLONE [Concomitant]
     Route: 048
     Dates: start: 20080709, end: 20080805
  22. PREDNISOLONE [Concomitant]
     Route: 048
     Dates: start: 20080806, end: 20080904
  23. PREDNISOLONE [Concomitant]
     Route: 048
     Dates: start: 20080905, end: 20081002
  24. PREDNISOLONE [Concomitant]
     Route: 048
     Dates: start: 20081003, end: 20081030
  25. LOXONIN [Concomitant]
     Indication: RHEUMATOID ARTHRITIS
     Route: 048
     Dates: start: 20080228

REACTIONS (10)
  - Oesophageal carcinoma [Unknown]
  - Necrotising fasciitis [Recovered/Resolved]
  - Septic shock [Unknown]
  - Disseminated intravascular coagulation [Unknown]
  - Renal failure acute [Unknown]
  - Tumour invasion [Unknown]
  - Liver disorder [Recovered/Resolved]
  - Jaundice [Recovered/Resolved]
  - Mycotic endophthalmitis [Recovered/Resolved]
  - Pneumonia [Unknown]
